FAERS Safety Report 7433281-0 (Version None)
Quarter: 2011Q2

REPORT INFORMATION
  Report Type: 
  Country: None (occurrence: None)
  Receive Date: 20110422
  Receipt Date: 20110415
  Transmission Date: 20111010
  Serious: No
  Sender: FDA-Public Use
  Company Number: US-B.I. PHARMACEUTICALS,INC./RIDGEFIELD-2011-BP-11080BP

PATIENT
  Age: 88 Year
  Sex: Female

DRUGS (7)
  1. SEROQUEL [Concomitant]
     Route: 048
  2. XANAX [Concomitant]
     Route: 048
  3. METFORMIN [Concomitant]
     Indication: DIABETES MELLITUS
     Route: 048
  4. DILTIAZEM [Concomitant]
     Route: 048
  5. VICODIN [Concomitant]
     Indication: ARTHRITIS
     Route: 048
  6. ENABLEX [Concomitant]
     Indication: URINARY INCONTINENCE
     Route: 048
  7. PRADAXA [Suspect]
     Indication: ATRIAL FIBRILLATION
     Dosage: 300 MG
     Route: 048
     Dates: start: 20110201

REACTIONS (7)
  - DEMENTIA [None]
  - HAEMORRHAGE [None]
  - CHILLS [None]
  - MOOD SWINGS [None]
  - INTERNATIONAL NORMALISED RATIO ABNORMAL [None]
  - ATRIAL FIBRILLATION [None]
  - LETHARGY [None]
